FAERS Safety Report 19692852 (Version 1)
Quarter: 2021Q3

REPORT INFORMATION
  Report Type: Spontaneous
  Country: US (occurrence: US)
  Receive Date: 20210812
  Receipt Date: 20210812
  Transmission Date: 20211014
  Serious: Yes (Other)
  Sender: FDA-Public Use
  Company Number: US-MALLINCKRODT PHARMACEUTICALS-T202103444

PATIENT
  Age: 18 Month
  Sex: Female

DRUGS (1)
  1. H.P. ACTHAR [Suspect]
     Active Substance: CORTICOTROPIN
     Indication: INFANTILE SPASMS
     Dosage: UNK
     Route: 065

REACTIONS (2)
  - Infantile spasms [Not Recovered/Not Resolved]
  - Condition aggravated [Not Recovered/Not Resolved]
